APPROVED DRUG PRODUCT: TRIHEXYPHENIDYL HYDROCHLORIDE
Active Ingredient: TRIHEXYPHENIDYL HYDROCHLORIDE
Strength: 2MG
Dosage Form/Route: TABLET;ORAL
Application: A088035 | Product #001
Applicant: VANGARD LABORATORIES INC DIV MIDWAY MEDICAL CO
Approved: Jul 30, 1982 | RLD: No | RS: No | Type: DISCN